FAERS Safety Report 5904320-0 (Version None)
Quarter: 2008Q3

REPORT INFORMATION
  Report Type: 
  Country: None (occurrence: None)
  Receive Date: 20080930
  Receipt Date: 20080930
  Transmission Date: 20090109
  Serious: Yes (Other)
  Sender: FDA-Public Use
  Company Number: None

PATIENT
  Sex: Female
  Weight: 50.8029 kg

DRUGS (1)
  1. YAZ [Suspect]
     Indication: ORAL CONTRACEPTION
     Dosage: DAILY
     Route: 048
     Dates: start: 20071001, end: 20080920

REACTIONS (8)
  - ANXIETY [None]
  - DEPRESSION [None]
  - DIZZINESS [None]
  - NERVOUSNESS [None]
  - PARANOIA [None]
  - TREMOR [None]
  - VOMITING [None]
  - WEIGHT DECREASED [None]
